FAERS Safety Report 6853174-7 (Version None)
Quarter: 2010Q3

REPORT INFORMATION
  Report Type: 
  Country: None (occurrence: None)
  Receive Date: 20100717
  Receipt Date: 20071130
  Transmission Date: 20110219
  Serious: Yes (Other)
  Sender: FDA-Public Use
  Company Number: US-PFIZER INC-2007102615

PATIENT
  Sex: Female
  Weight: 65.909 kg

DRUGS (3)
  1. CHANTIX [Suspect]
     Indication: SMOKING CESSATION THERAPY
     Dosage: EVERY DAY
     Dates: start: 20071114, end: 20071129
  2. LISINOPRIL [Concomitant]
     Indication: SUPRAVENTRICULAR TACHYCARDIA
     Route: 048
  3. ATENOLOL [Concomitant]
     Indication: SUPRAVENTRICULAR TACHYCARDIA

REACTIONS (9)
  - BRADYCARDIA [None]
  - CARDIAC FLUTTER [None]
  - DYSPNOEA [None]
  - ELECTROCARDIOGRAM T WAVE ABNORMAL [None]
  - EXTRASYSTOLES [None]
  - HEART RATE DECREASED [None]
  - PALPITATIONS [None]
  - SINUS ARRHYTHMIA [None]
  - VENTRICULAR EXTRASYSTOLES [None]
